FAERS Safety Report 17142915 (Version 1)
Quarter: 2019Q4

REPORT INFORMATION
  Report Type: Spontaneous
  Country: GB (occurrence: GB)
  Receive Date: 20191211
  Receipt Date: 20191211
  Transmission Date: 20200122
  Serious: Yes (Other)
  Sender: FDA-Public Use
  Company Number: GB-ALLERGAN-1950600US

PATIENT
  Sex: Female

DRUGS (1)
  1. ATROPINE UNK [Suspect]
     Active Substance: ATROPINE SULFATE
     Indication: PRODUCT USED FOR UNKNOWN INDICATION
     Route: 050
     Dates: start: 20190524

REACTIONS (2)
  - Vision blurred [Unknown]
  - Incorrect route of product administration [Unknown]
